FAERS Safety Report 10465415 (Version 2)
Quarter: 2014Q4

REPORT INFORMATION
  Report Type: Report from Study
  Country: JP (occurrence: JP)
  Receive Date: 20140919
  Receipt Date: 20141107
  Transmission Date: 20150528
  Serious: Yes (Hospitalization)
  Sender: FDA-Public Use
  Company Number: JP-GILEAD-2014-0115477

PATIENT
  Age: 28 Year
  Sex: Female
  Weight: 60 kg

DRUGS (23)
  1. AMBRISENTAN [Suspect]
     Active Substance: AMBRISENTAN
     Dosage: 5 MG, QD
     Route: 048
     Dates: start: 20110127, end: 20110223
  2. ZYPREXA [Concomitant]
     Active Substance: OLANZAPINE
     Route: 048
  3. ZYPREXA [Concomitant]
     Active Substance: OLANZAPINE
     Route: 048
  4. LULLAN [Concomitant]
     Active Substance: PEROSPIRONE HYDROCHLORIDE
     Route: 048
  5. MAGLAX [Concomitant]
     Active Substance: MAGNESIUM OXIDE
     Route: 048
  6. EURODIN                            /00401202/ [Concomitant]
     Route: 048
  7. MEILAX [Concomitant]
     Active Substance: ETHYL LOFLAZEPATE
     Route: 048
  8. URSO [Concomitant]
     Active Substance: URSODIOL
     Route: 048
  9. TAKEPRON [Concomitant]
     Active Substance: LANSOPRAZOLE
     Indication: GASTRITIS PROPHYLAXIS
     Route: 048
  10. MAGLAX [Concomitant]
     Active Substance: MAGNESIUM OXIDE
     Indication: CONSTIPATION PROPHYLAXIS
     Route: 048
  11. MARZULENE                          /00317302/ [Concomitant]
     Indication: GASTRITIS PROPHYLAXIS
     Route: 048
  12. FERROMIA [Concomitant]
     Active Substance: FERROUS CITRATE
     Route: 048
  13. TAKEPRON [Concomitant]
     Active Substance: LANSOPRAZOLE
     Route: 048
  14. REVATIO [Concomitant]
     Active Substance: SILDENAFIL CITRATE
     Route: 048
  15. LUVOX [Concomitant]
     Active Substance: FLUVOXAMINE MALEATE
     Route: 048
  16. LEXOTAN [Concomitant]
     Active Substance: BROMAZEPAM
     Route: 048
  17. AMBRISENTAN [Suspect]
     Active Substance: AMBRISENTAN
     Indication: PULMONARY ARTERIAL HYPERTENSION
     Dosage: 10 MG, QD
     Route: 048
     Dates: start: 20110224
  18. REVATIO [Concomitant]
     Active Substance: SILDENAFIL CITRATE
     Indication: PULMONARY ARTERIAL HYPERTENSION
     Route: 048
  19. MEILAX [Concomitant]
     Active Substance: ETHYL LOFLAZEPATE
     Route: 048
  20. LULLAN [Concomitant]
     Active Substance: PEROSPIRONE HYDROCHLORIDE
     Route: 048
  21. LUVOX [Concomitant]
     Active Substance: FLUVOXAMINE MALEATE
     Route: 048
  22. LEXOTAN [Concomitant]
     Active Substance: BROMAZEPAM
     Route: 048
  23. FERROMIA [Concomitant]
     Active Substance: FERROUS CITRATE
     Route: 048

REACTIONS (2)
  - Anxiety [Recovering/Resolving]
  - Anxiety [Recovering/Resolving]

NARRATIVE: CASE EVENT DATE: 201103
